FAERS Safety Report 10338022 (Version 1)
Quarter: 2014Q3

REPORT INFORMATION
  Report Type: Spontaneous
  Country: US (occurrence: None)
  Receive Date: 20140722
  Receipt Date: 20140722
  Transmission Date: 20150326
  Serious: Yes (Hospitalization)
  Sender: FDA-Public Use
  Company Number: None

PATIENT
  Age: 24 Year
  Sex: Female
  Weight: 48.54 kg

DRUGS (1)
  1. FERRLECIT [Suspect]
     Active Substance: SODIUM FERRIC GLUCONATE COMPLEX
     Indication: ANAEMIA
     Dosage: 62.5MG EVER OTHER MONTH INTRAVENOUS
     Route: 042
     Dates: start: 20140715, end: 20140715

REACTIONS (1)
  - Adverse event [None]

NARRATIVE: CASE EVENT DATE: 20140715
